FAERS Safety Report 6157600-0 (Version None)
Quarter: 2009Q2

REPORT INFORMATION
  Report Type: 
  Country: None (occurrence: None)
  Receive Date: 20090416
  Receipt Date: 20090407
  Transmission Date: 20091009
  Serious: Yes (Life-Threatening, Hospitalization)
  Sender: FDA-Public Use
  Company Number: FI-WATSON-2009-02372

PATIENT
  Age: 38 Year
  Sex: Male

DRUGS (4)
  1. AMLODIPINE BESYLATE [Suspect]
     Indication: OVERDOSE
     Dosage: 630 MG, UNK
  2. CITALOPRAM HYDROBROMIDE [Suspect]
     Indication: OVERDOSE
     Dosage: UNK
  3. ZOPICLONE [Suspect]
     Indication: OVERDOSE
     Dosage: 300 MG, UNK
  4. ACETAMINOPHEN [Suspect]
     Indication: OVERDOSE
     Dosage: UNK

REACTIONS (3)
  - CIRCULATORY COLLAPSE [None]
  - COMA [None]
  - OVERDOSE [None]
